FAERS Safety Report 17163526 (Version 1)
Quarter: 2019Q4

REPORT INFORMATION
  Report Type: Spontaneous
  Country: US (occurrence: US)
  Receive Date: 20191125
  Receipt Date: 20191125
  Transmission Date: 20200122
  Serious: Yes (Hospitalization)
  Sender: FDA-Public Use
  Company Number: None

PATIENT
  Age: 79 Year
  Sex: Male

DRUGS (1)
  1. TOBRAMYCIN. [Suspect]
     Active Substance: TOBRAMYCIN
     Indication: ASTHMA
     Dosage: ?          OTHER DOSE:ONE VIEL;?
     Route: 055
     Dates: start: 20190925

REACTIONS (1)
  - Product dose omission [None]

NARRATIVE: CASE EVENT DATE: 20191111
